FAERS Safety Report 24392961 (Version 1)
Quarter: 2024Q4

REPORT INFORMATION
  Report Type: Spontaneous
  Country: US (occurrence: None)
  Receive Date: 20241003
  Receipt Date: 20241003
  Transmission Date: 20250114
  Serious: No
  Sender: Public
  Company Number: None

PATIENT
  Age: 81 Year
  Sex: Female

DRUGS (1)
  1. COSENTYX [Suspect]
     Active Substance: SECUKINUMAB
     Indication: Psoriasis
     Dosage: OTHER FREQUENCY : WKFO5WEEKSASDIRECTED;?
     Route: 058
     Dates: start: 202409

REACTIONS (5)
  - Multiple allergies [None]
  - Pruritus [None]
  - Therapeutic product effect variable [None]
  - Arthralgia [None]
  - Throat irritation [None]
